FAERS Safety Report 6576294-3 (Version None)
Quarter: 2010Q1

REPORT INFORMATION
  Report Type: 
  Country: None (occurrence: None)
  Receive Date: 20100210
  Receipt Date: 20100203
  Transmission Date: 20100710
  Serious: Yes (Hospitalization)
  Sender: FDA-Public Use
  Company Number: US-BIOGENIDEC-2010BI002629

PATIENT
  Age: 42 Year
  Sex: Female

DRUGS (1)
  1. TYSABRI [Suspect]
     Indication: CROHN'S DISEASE
     Route: 042
     Dates: start: 20090409

REACTIONS (4)
  - ABDOMINAL DISCOMFORT [None]
  - CROHN'S DISEASE [None]
  - MUSCLE SPASMS [None]
  - PYODERMA GANGRENOSUM [None]
